FAERS Safety Report 4977963-9 (Version None)
Quarter: 2006Q2

REPORT INFORMATION
  Report Type: 
  Country: None (occurrence: None)
  Receive Date: 20060420
  Receipt Date: 20060410
  Transmission Date: 20061013
  Serious: Yes (Hospitalization, Other)
  Sender: FDA-Public Use
  Company Number: 2006PK00711

PATIENT
  Age: 25349 Day
  Sex: Female
  Weight: 80 kg

DRUGS (2)
  1. ARIMIDEX [Suspect]
     Indication: BREAST CANCER
     Route: 048
     Dates: start: 20051011
  2. NOLVADEX [Suspect]
     Indication: BREAST CANCER
     Route: 048
     Dates: start: 20030916, end: 20051011

REACTIONS (4)
  - OVARIAN CYST [None]
  - UTERINE CERVICAL SQUAMOUS METAPLASIA [None]
  - UTERINE LEIOMYOMA [None]
  - UTERINE POLYP [None]
